FAERS Safety Report 12887721 (Version 1)
Quarter: 2016Q4

REPORT INFORMATION
  Report Type: Report from Study
  Country: US (occurrence: US)
  Receive Date: 20161027
  Receipt Date: 20161027
  Transmission Date: 20170207
  Serious: No
  Sender: FDA-Public Use
  Company Number: US-AMGEN-USASL2016145101

PATIENT
  Age: 60 Year
  Sex: Male

DRUGS (1)
  1. ENBREL [Suspect]
     Active Substance: ETANERCEPT
     Indication: ANKYLOSING SPONDYLITIS
     Dosage: 50 MG, QWK
     Route: 065
     Dates: start: 2004

REACTIONS (7)
  - Road traffic accident [Unknown]
  - Drug ineffective [Unknown]
  - Neck pain [Unknown]
  - Influenza [Unknown]
  - Musculoskeletal stiffness [Unknown]
  - Muscle injury [Unknown]
  - Myalgia [Unknown]

NARRATIVE: CASE EVENT DATE: 2016
